FAERS Safety Report 10394206 (Version 2)
Quarter: 2015Q4

REPORT INFORMATION
  Report Type: Spontaneous
  Country: US (occurrence: US)
  Receive Date: 20140819
  Receipt Date: 20151126
  Transmission Date: 20160304
  Serious: Yes (Disabling, Other)
  Sender: FDA-Public Use
  Company Number: US-ASTRAZENECA-2014SE59215

PATIENT
  Age: 71 Year
  Sex: Male
  Weight: 59 kg

DRUGS (18)
  1. LISINOPRIL. [Suspect]
     Active Substance: LISINOPRIL
     Route: 048
  2. ATORVASTATIN CALCIUM. [Concomitant]
     Active Substance: ATORVASTATIN CALCIUM
     Indication: BLOOD CHOLESTEROL ABNORMAL
     Route: 048
  3. SIMETHICONE (DIMETHICONE) [Concomitant]
     Active Substance: DIMETHICONE
     Indication: FLATULENCE
     Route: 048
  4. POTASSIUM CHLORIDE. [Concomitant]
     Active Substance: POTASSIUM CHLORIDE
     Indication: CARDIAC DISORDER
     Route: 048
  5. ZOLADEX [Suspect]
     Active Substance: GOSERELIN ACETATE
     Indication: PROSTATE CANCER
     Route: 058
     Dates: start: 2000, end: 2013
  6. METOPROLOL SUCCINATE. [Suspect]
     Active Substance: METOPROLOL SUCCINATE
     Indication: CARDIAC FAILURE
     Route: 048
  7. ZOLADEX [Suspect]
     Active Substance: GOSERELIN ACETATE
     Indication: PROSTATE CANCER
     Route: 058
     Dates: start: 1995
  8. METOPROLOL SUCCINATE. [Suspect]
     Active Substance: METOPROLOL SUCCINATE
     Indication: CARDIAC FAILURE
     Route: 048
  9. ASPRIN [Concomitant]
     Active Substance: ASPIRIN
     Indication: CARDIAC DISORDER
     Route: 048
  10. VITAMIN B12 [Concomitant]
     Active Substance: CYANOCOBALAMIN
     Indication: VITAMIN SUPPLEMENTATION
     Dosage: BID
     Route: 048
  11. ISOSORBIDE. [Concomitant]
     Active Substance: ISOSORBIDE
     Indication: CHEST PAIN
     Dates: start: 1990
  12. RANITIDINE HYDROCHLORIDE. [Concomitant]
     Active Substance: RANITIDINE HYDROCHLORIDE
     Indication: GASTROOESOPHAGEAL REFLUX DISEASE
     Dosage: 150 MG
     Route: 048
  13. VITAMIN B6 [Concomitant]
     Active Substance: PYRIDOXINE HYDROCHLORIDE
     Indication: VITAMIN SUPPLEMENTATION
     Dosage: BID
     Route: 048
  14. ELIGARD [Concomitant]
     Active Substance: LEUPROLIDE ACETATE
  15. DOCUSTE MA SENNOSIDS [Concomitant]
     Indication: FAECES SOFT
     Dosage: 50MG 8.6MG PRN BID
     Route: 048
  16. FISH OIL [Concomitant]
     Active Substance: FISH OIL
     Indication: CARDIAC DISORDER
     Route: 048
  17. CALCIUM ACETATE. [Concomitant]
     Active Substance: CALCIUM ACETATE
     Route: 048
  18. MULTIVITES SENIOR FORMULAR [Concomitant]
     Indication: VITAMIN SUPPLEMENTATION
     Route: 048

REACTIONS (22)
  - Pulmonary oedema [Unknown]
  - Dysphagia [Unknown]
  - Hot flush [Unknown]
  - Apathy [Unknown]
  - Throat lesion [Unknown]
  - Weight decreased [Recovering/Resolving]
  - Malignant neoplasm progression [Unknown]
  - Body height decreased [Not Recovered/Not Resolved]
  - Adverse event [Unknown]
  - Dyspepsia [Unknown]
  - Weight increased [Unknown]
  - Bladder disorder [Unknown]
  - Peripheral nerve injury [Unknown]
  - Tinea pedis [Unknown]
  - Fluid retention [Unknown]
  - Breast enlargement [Unknown]
  - Cardiac disorder [Unknown]
  - Flatulence [Unknown]
  - Abdominal discomfort [Unknown]
  - Somnolence [Unknown]
  - Asthenia [Recovering/Resolving]
  - Intentional product misuse [Unknown]

NARRATIVE: CASE EVENT DATE: 1999
